FAERS Safety Report 18030882 (Version 2)
Quarter: 2022Q1

REPORT INFORMATION
  Report Type: Other
  Country: US (occurrence: None)
  Receive Date: 20200715
  Receipt Date: 20220125
  Transmission Date: 20220423
  Serious: Yes (Death, Hospitalization)
  Sender: FDA-Public Use
  Company Number: US-ROCHE-2575307

PATIENT
  Sex: Female

DRUGS (1)
  1. ZELBORAF [Suspect]
     Active Substance: VEMURAFENIB
     Indication: Colon cancer
     Dosage: TAKE 4 TABLETS BY MOUTH TWICE A DAY
     Route: 048

REACTIONS (3)
  - Off label use [Unknown]
  - Pneumonia [Unknown]
  - Death [Fatal]
